FAERS Safety Report 9217980 (Version 13)
Quarter: 2020Q3

REPORT INFORMATION
  Report Type: Other
  Country: BR (occurrence: BR)
  Receive Date: 20130408
  Receipt Date: 20200918
  Transmission Date: 20201103
  Serious: Yes (Hospitalization, Disabling, Other)
  Sender: FDA-Public Use
  Company Number: BR-ROCHE-1071923

PATIENT
  Age: 56 Year
  Sex: Female
  Weight: 90 kg

DRUGS (19)
  1. CALCORT [Suspect]
     Active Substance: DEFLAZACORT
     Indication: OSTEOARTHRITIS
     Route: 048
  2. PARACETAMOL [Concomitant]
     Active Substance: ACETAMINOPHEN
     Indication: PREMEDICATION
     Dosage: 3 TABLETS
  3. SIMVASTATIN. [Concomitant]
     Active Substance: SIMVASTATIN
  4. MABTHERA [Suspect]
     Active Substance: RITUXIMAB
     Route: 042
     Dates: start: 20090901
  5. METHOTREXATE. [Suspect]
     Active Substance: METHOTREXATE
     Indication: PRODUCT USED FOR UNKNOWN INDICATION
     Route: 065
  6. PRESS PLUS [Concomitant]
     Indication: HYPERTENSION
  7. MABTHERA [Suspect]
     Active Substance: RITUXIMAB
     Indication: RHEUMATOID ARTHRITIS
     Route: 042
     Dates: start: 20090901, end: 20111116
  8. ACTEMRA [Suspect]
     Active Substance: TOCILIZUMAB
     Route: 042
     Dates: start: 20130118
  9. CALCORT [Suspect]
     Active Substance: DEFLAZACORT
     Indication: RHEUMATOID ARTHRITIS
     Route: 048
     Dates: start: 20130626
  10. LANSOPRAZOLE. [Concomitant]
     Active Substance: LANSOPRAZOLE
     Indication: GASTROINTESTINAL DISORDER PROPHYLAXIS
     Route: 048
  11. SYNTHROID [Concomitant]
     Active Substance: LEVOTHYROXINE SODIUM
     Indication: HYPOTHYROIDISM
  12. NOVALGINA [Concomitant]
     Active Substance: METAMIZOLE SODIUM
  13. FLOTAC [Concomitant]
     Active Substance: DICLOFENAC SODIUM
  14. ACTEMRA [Suspect]
     Active Substance: TOCILIZUMAB
     Indication: RHEUMATOID ARTHRITIS
     Dosage: LATEST INFUSION WAS ON 01/10/2016, MOST RECENT INFUSION 17/DEC/2016. MOST RECENT INFUSION ON 05/SEP/
     Route: 042
     Dates: start: 20130118, end: 20130118
  15. LISADOR [Concomitant]
     Active Substance: DIPYRONE\PROMETHAZINE HYDROCHLORIDE
  16. DEFLAZACORT [Concomitant]
     Active Substance: DEFLAZACORT
  17. LEFLUNOMIDE. [Suspect]
     Active Substance: LEFLUNOMIDE
     Indication: PRODUCT USED FOR UNKNOWN INDICATION
     Route: 065
  18. LANSOPRAZOLE. [Concomitant]
     Active Substance: LANSOPRAZOLE
  19. PREDNISONE. [Concomitant]
     Active Substance: PREDNISONE
     Indication: RHEUMATOID ARTHRITIS
     Route: 065

REACTIONS (38)
  - Throat irritation [Recovered/Resolved]
  - Soft tissue haemorrhage [Unknown]
  - Migraine [Recovered/Resolved]
  - Wound secretion [Not Recovered/Not Resolved]
  - Scoliosis [Not Recovered/Not Resolved]
  - Arthropathy [Not Recovered/Not Resolved]
  - Abscess [Unknown]
  - Erythema [Recovered/Resolved]
  - Abscess limb [Recovering/Resolving]
  - Pain [Unknown]
  - Nasopharyngitis [Unknown]
  - Skin discolouration [Recovered/Resolved]
  - Therapeutic response decreased [Unknown]
  - Hypertension [Unknown]
  - Blood pressure decreased [Unknown]
  - Blood pressure fluctuation [Unknown]
  - Gait disturbance [Not Recovered/Not Resolved]
  - Intervertebral disc disorder [Not Recovered/Not Resolved]
  - Device loosening [Recovering/Resolving]
  - Cellulitis [Recovered/Resolved]
  - Thyroid cancer [Recovered/Resolved]
  - Renal cancer [Recovered/Resolved]
  - Infection [Unknown]
  - Gastrointestinal disorder [Recovered/Resolved]
  - Immunodeficiency [Unknown]
  - Joint injury [Not Recovered/Not Resolved]
  - Gait inability [Recovered/Resolved]
  - Limb injury [Not Recovered/Not Resolved]
  - Medical device removal [Recovered/Resolved]
  - Device dislocation [Recovered/Resolved with Sequelae]
  - Chills [Recovered/Resolved]
  - Pain [Recovered/Resolved]
  - Arthralgia [Unknown]
  - Allergy to chemicals [Unknown]
  - Gait disturbance [Unknown]
  - Condition aggravated [Unknown]
  - Skin disorder [Unknown]
  - Hypersensitivity [Recovered/Resolved]

NARRATIVE: CASE EVENT DATE: 201207
